FAERS Safety Report 5897223-1 (Version None)
Quarter: 2008Q3

REPORT INFORMATION
  Report Type: 
  Country: None (occurrence: None)
  Receive Date: 20080923
  Receipt Date: 20080909
  Transmission Date: 20090109
  Serious: Yes (Hospitalization)
  Sender: FDA-Public Use
  Company Number: B0537826A

PATIENT
  Age: 81 Year
  Sex: Female

DRUGS (4)
  1. DIGOXIN [Suspect]
     Indication: ATRIAL FIBRILLATION
     Dosage: 62.5 MCG, AS REQUIRED, ORAL
     Route: 048
  2. ASPIRIN [Concomitant]
  3. FRUSEMIDE [Concomitant]
  4. PANCREATIN TRIPLE STRENGTH CAP [Concomitant]

REACTIONS (9)
  - ATRIAL FIBRILLATION [None]
  - CARDIAC FAILURE CONGESTIVE [None]
  - CARDIOACTIVE DRUG LEVEL BELOW THERAPEUTIC [None]
  - CREPITATIONS [None]
  - EXERCISE TOLERANCE DECREASED [None]
  - MALABSORPTION [None]
  - NO THERAPEUTIC RESPONSE [None]
  - ORTHOPNOEA [None]
  - VENOUS PRESSURE JUGULAR INCREASED [None]
